FAERS Safety Report 18582362 (Version 1)
Quarter: 2020Q4

REPORT INFORMATION
  Report Type: Spontaneous
  Country: JP (occurrence: JP)
  Receive Date: 20201205
  Receipt Date: 20201205
  Transmission Date: 20210114
  Serious: Yes (Hospitalization)
  Sender: FDA-Public Use
  Company Number: JP-LUPIN PHARMACEUTICALS INC.-2020-09815

PATIENT
  Age: 70 Year
  Sex: Male

DRUGS (9)
  1. AMPHOTERICIN-B LIPOSOMAL [Suspect]
     Active Substance: AMPHOTERICIN B
     Indication: FEBRILE NEUTROPENIA
     Dosage: 2.5 MILLIGRAM/KILOGRAM, QD
     Route: 065
  2. AMPHOTERICIN-B LIPOSOMAL [Suspect]
     Active Substance: AMPHOTERICIN B
     Indication: ACUTE SINUSITIS
     Dosage: 5 MILLIGRAM/KILOGRAM, QD
     Route: 065
  3. MICAFUNGIN. [Suspect]
     Active Substance: MICAFUNGIN SODIUM
     Indication: FEBRILE NEUTROPENIA
     Dosage: 150 MILLIGRAM, QD
     Route: 065
  4. AMPHOTERICIN-B LIPOSOMAL [Suspect]
     Active Substance: AMPHOTERICIN B
     Dosage: 10 MILLIGRAM/KILOGRAM, QD (AFTER THE OPERATION)
     Route: 065
  5. CYTARABINE. [Concomitant]
     Active Substance: CYTARABINE
     Indication: ACUTE MONOCYTIC LEUKAEMIA
     Dosage: UNK
     Route: 065
  6. LEVOFLOXACIN. [Suspect]
     Active Substance: LEVOFLOXACIN
     Indication: FEBRILE NEUTROPENIA
     Dosage: 500 MILLIGRAM, QD
     Route: 065
  7. MEROPENEM. [Suspect]
     Active Substance: MEROPENEM
     Indication: ACUTE SINUSITIS
     Dosage: 4 GRAM, QD
     Route: 065
  8. DAUNORUBICIN [Concomitant]
     Active Substance: DAUNORUBICIN
     Indication: ACUTE MONOCYTIC LEUKAEMIA
     Dosage: UNK
     Route: 065
  9. MEROPENEM. [Suspect]
     Active Substance: MEROPENEM
     Indication: FEBRILE NEUTROPENIA
     Dosage: 1.5 GRAM, QD
     Route: 065

REACTIONS (1)
  - Drug ineffective [Unknown]
